FAERS Safety Report 6636616-1 (Version None)
Quarter: 2010Q1

REPORT INFORMATION
  Report Type: 
  Country: None (occurrence: None)
  Receive Date: 20100316
  Receipt Date: 20100305
  Transmission Date: 20100710
  Serious: Yes (Death)
  Sender: FDA-Public Use
  Company Number: CH-MERCK-1003CHE00003

PATIENT
  Age: 51 Year
  Sex: Female

DRUGS (3)
  1. CANCIDAS [Suspect]
     Indication: ZYGOMYCOSIS
     Route: 051
     Dates: start: 20080116
  2. VORICONAZOLE [Suspect]
     Indication: ZYGOMYCOSIS
     Route: 051
     Dates: start: 20071001, end: 20080115
  3. ANTIMICROBIAL (UNSPECIFIED) [Concomitant]
     Route: 065
     Dates: start: 20080103

REACTIONS (1)
  - ZYGOMYCOSIS [None]
